FAERS Safety Report 8570405-6 (Version None)
Quarter: 2012Q3

REPORT INFORMATION
  Report Type: 
  Country: None (occurrence: None)
  Receive Date: 20120803
  Receipt Date: 20120726
  Transmission Date: 20120928
  Serious: Yes (Hospitalization, Other)
  Sender: FDA-Public Use
  Company Number: US-ASTRAZENECA-2010SE05175

PATIENT
  Age: 59 Year
  Sex: Female
  Weight: 51.7 kg

DRUGS (25)
  1. SEROQUEL [Suspect]
     Route: 048
     Dates: start: 20090101
  2. SEROQUEL [Suspect]
     Route: 048
     Dates: start: 20090101
  3. SEROQUEL [Suspect]
     Indication: CONVULSION
     Route: 048
     Dates: start: 20080101
  4. SEROQUEL [Suspect]
     Route: 048
     Dates: start: 20090101
  5. SEROQUEL [Suspect]
     Route: 048
     Dates: start: 20090101
  6. LAMICTAL [Concomitant]
  7. LAMICTAL [Concomitant]
  8. SEROQUEL [Suspect]
     Route: 048
     Dates: start: 20090101
  9. SEROQUEL [Suspect]
     Route: 048
  10. LAMICTAL [Concomitant]
     Indication: DEPRESSION
  11. SEROQUEL [Suspect]
     Indication: SLEEP DISORDER
     Route: 048
     Dates: start: 20080101
  12. SEROQUEL [Suspect]
     Route: 048
     Dates: start: 20091101
  13. SEROQUEL [Suspect]
     Route: 048
  14. LAMICTAL [Concomitant]
     Indication: ANXIETY
  15. SEROQUEL [Suspect]
     Indication: ANXIETY
     Route: 048
     Dates: start: 20080101
  16. SEROQUEL [Suspect]
     Route: 048
     Dates: start: 20091101
  17. SEROQUEL [Suspect]
     Route: 048
     Dates: start: 20091101
  18. SEROQUEL [Suspect]
     Route: 048
  19. LAMICTAL [Concomitant]
  20. SEROQUEL [Suspect]
     Route: 048
     Dates: start: 20090101
  21. SEROQUEL [Suspect]
     Route: 048
  22. SEROQUEL [Suspect]
     Route: 048
  23. SEROQUEL [Suspect]
     Route: 048
  24. LAMICTAL [Concomitant]
     Indication: CONVULSION
  25. DEPAKOTE ER [Concomitant]
     Indication: CONVULSION
     Route: 048

REACTIONS (23)
  - FEELING ABNORMAL [None]
  - INTENTIONAL DRUG MISUSE [None]
  - MEMORY IMPAIRMENT [None]
  - INSOMNIA [None]
  - DRUG DOSE OMISSION [None]
  - DRUG INEFFECTIVE [None]
  - COMPLEX PARTIAL SEIZURES [None]
  - DISORIENTATION [None]
  - TREMOR [None]
  - OFF LABEL USE [None]
  - DEPRESSION [None]
  - AMNESIA [None]
  - MIDDLE INSOMNIA [None]
  - HEAD INJURY [None]
  - FATIGUE [None]
  - DRY MOUTH [None]
  - ROAD TRAFFIC ACCIDENT [None]
  - PELVIC FRACTURE [None]
  - CONVULSION [None]
  - STRESS [None]
  - SOMNOLENCE [None]
  - HEADACHE [None]
  - DRUG INTOLERANCE [None]
